FAERS Safety Report 5822049-4 (Version None)
Quarter: 2008Q3

REPORT INFORMATION
  Report Type: 
  Country: None (occurrence: None)
  Receive Date: 20080717
  Receipt Date: 20080704
  Transmission Date: 20090109
  Serious: Yes (Hospitalization)
  Sender: FDA-Public Use
  Company Number: 2008BI016982

PATIENT
  Age: 40 Year
  Sex: Male

DRUGS (2)
  1. AVONEX [Suspect]
     Indication: MULTIPLE SCLEROSIS
     Dosage: 30 UG; QW/ IM
     Dates: start: 20071003, end: 20071030
  2. REBIF (PRBIF) [Concomitant]

REACTIONS (3)
  - ANTIPHOSPHOLIPID SYNDROME [None]
  - HYPERTHERMIA [None]
  - INJECTION SITE ABSCESS [None]
